FAERS Safety Report 7821482-9 (Version None)
Quarter: 2011Q4

REPORT INFORMATION
  Report Type: 
  Country: None (occurrence: None)
  Receive Date: 20111018
  Receipt Date: 20110624
  Transmission Date: 20120403
  Serious: No
  Sender: FDA-Public Use
  Company Number: US-ASTRAZENECA-2011SE38340

PATIENT
  Age: 31 Year
  Sex: Female
  Weight: 61.2 kg

DRUGS (1)
  1. SYMBICORT [Suspect]
     Indication: HYPERSENSITIVITY
     Dosage: 160/4.5 BID
     Route: 055

REACTIONS (4)
  - DIARRHOEA [None]
  - ABDOMINAL PAIN UPPER [None]
  - PARAESTHESIA [None]
  - COUGH [None]
